FAERS Safety Report 4361277-4 (Version None)
Quarter: 2004Q2

REPORT INFORMATION
  Report Type: 
  Country: None (occurrence: None)
  Receive Date: 20040520
  Receipt Date: 20040209
  Transmission Date: 20050107
  Serious: Yes (Hospitalization)
  Sender: FDA-Public Use
  Company Number: FR-GLAXOSMITHKLINE-B0322525A

PATIENT
  Age: 55 Year
  Sex: Male

DRUGS (3)
  1. CLAMOXYL [Suspect]
     Indication: NASAL CONGESTION
     Dosage: 2UNIT PER DAY
     Route: 048
     Dates: start: 20031022, end: 20031022
  2. SEROPRAM [Concomitant]
     Dosage: 10MG PER DAY
     Route: 048
  3. ARCALION [Concomitant]
     Dosage: 400MG PER DAY
     Route: 048

REACTIONS (11)
  - ANAPHYLACTIC SHOCK [None]
  - ASTHENIA [None]
  - CHILLS [None]
  - DYSPNOEA [None]
  - HYPERGLYCAEMIA [None]
  - HYPERHIDROSIS [None]
  - HYPOTENSION [None]
  - HYPOTHERMIA [None]
  - TREMOR [None]
  - VERTIGO [None]
  - VOMITING [None]
